FAERS Safety Report 4659889-3 (Version None)
Quarter: 2005Q2

REPORT INFORMATION
  Report Type: 
  Country: None (occurrence: None)
  Receive Date: 20050502
  Receipt Date: 20040929
  Transmission Date: 20051028
  Serious: Yes (Hospitalization)
  Sender: FDA-Public Use
  Company Number: KDL093080

PATIENT
  Age: 59 Year
  Sex: Male
  Weight: 76.5 kg

DRUGS (2)
  1. PROCRIT [Suspect]
     Indication: ANAEMIA OF MALIGNANT DISEASE
     Dosage: 1000 IU, 1 IN 1 WEEKS
     Dates: start: 20040817, end: 20040909
  2. ARANESP [Suspect]
     Indication: ANAEMIA OF MALIGNANT DISEASE
     Dates: start: 20040909

REACTIONS (1)
  - THROMBOSIS [None]
